FAERS Safety Report 17031472 (Version 3)
Quarter: 2020Q1

REPORT INFORMATION
  Report Type: Spontaneous
  Country: US (occurrence: US)
  Receive Date: 20191114
  Receipt Date: 20200218
  Transmission Date: 20200409
  Serious: No
  Sender: FDA-Public Use
  Company Number: US-PFIZER INC-2019491199

PATIENT
  Age: 67 Year
  Sex: Female

DRUGS (1)
  1. XELJANZ XR [Suspect]
     Active Substance: TOFACITINIB CITRATE
     Dosage: 11 MG, UNK
     Dates: start: 201908

REACTIONS (6)
  - Pain [Unknown]
  - Sciatica [Unknown]
  - Gastric disorder [Unknown]
  - Influenza [Unknown]
  - Cough [Unknown]
  - Intervertebral disc degeneration [Unknown]
